FAERS Safety Report 8429674-5 (Version None)
Quarter: 2012Q2

REPORT INFORMATION
  Report Type: 
  Country: None (occurrence: None)
  Receive Date: 20120524
  Receipt Date: 20120517
  Transmission Date: 20120825
  Serious: Yes (Death, Hospitalization)
  Sender: FDA-Public Use
  Company Number: AEUSA201200028

PATIENT
  Age: 5 Year
  Sex: Male
  Weight: 25 kg

DRUGS (2)
  1. ALPHANATE [Suspect]
     Indication: HAEMOPHILIA A WITH ANTI FACTOR VIII
     Dosage: 100 IU/KG;QD;IV
     Route: 042
     Dates: start: 20070901, end: 20110707
  2. FEIBA [Suspect]
     Indication: HAEMOPHILIA A WITH ANTI FACTOR VIII
     Dosage: 70 IU/KG;QOD;IV
     Route: 042
     Dates: start: 20070101, end: 20110706

REACTIONS (17)
  - DISCOMFORT [None]
  - OEDEMA PERIPHERAL [None]
  - VOMITING [None]
  - PNEUMOTHORAX [None]
  - CARDIOMEGALY [None]
  - COUGH [None]
  - RESTLESSNESS [None]
  - PNEUMONIA [None]
  - STAPHYLOCOCCAL INFECTION [None]
  - HAEMOPTYSIS [None]
  - DYSPNOEA [None]
  - FATIGUE [None]
  - PULMONARY EMBOLISM [None]
  - PULMONARY HAEMORRHAGE [None]
  - RIGHT VENTRICULAR FAILURE [None]
  - CARDIAC FAILURE CONGESTIVE [None]
  - CARDIO-RESPIRATORY ARREST [None]
